FAERS Safety Report 7632548 (Version 8)
Quarter: 2013Q1

REPORT INFORMATION
  Report Type: Spontaneous
  Country: US (occurrence: US)
  Receive Date: 20101018
  Receipt Date: 20130103
  Transmission Date: 20140127
  Serious: Yes (Hospitalization, Congenital Anomaly, Other)
  Sender: FDA-Public Use
  Company Number: US-PFIZER INC-2010128179

PATIENT
  Sex: Male
  Weight: 3 kg

DRUGS (19)
  1. ZOLOFT [Suspect]
     Dosage: UNK
     Route: 064
     Dates: start: 200003
  2. ZOLOFT [Suspect]
     Dosage: UNK
     Route: 064
     Dates: start: 2002
  3. AUGMENTIN [Concomitant]
     Dosage: 850 MG, 2X/DAY
     Route: 064
  4. TYLENOL [Concomitant]
     Dosage: UNK
     Route: 064
  5. AMPICILLIN [Concomitant]
     Indication: INFECTION
     Dosage: TWO DOSES
     Route: 064
  6. DIFLUCAN [Concomitant]
     Dosage: UNK
     Route: 064
  7. TETRACYCLINE [Concomitant]
     Dosage: UNK
     Route: 064
  8. IBUPROFEN [Concomitant]
     Dosage: UNK
     Route: 064
  9. TUMS [Concomitant]
     Dosage: UNK
     Route: 064
  10. ALLEGRA [Concomitant]
     Dosage: UNK
     Route: 064
  11. XYLOCAINE WITH EPINEPHRINE [Concomitant]
     Dosage: UNK
     Route: 064
  12. TYLENOL WITH CODEINE [Concomitant]
     Dosage: UNK
     Route: 064
  13. MOTRIN [Concomitant]
     Dosage: UNK
     Route: 064
  14. ZITHROMAX [Concomitant]
     Dosage: UNK
     Route: 064
  15. BEXTRA [Concomitant]
     Dosage: UNK
     Route: 064
  16. BENADRYL [Concomitant]
     Dosage: UNK
     Route: 064
  17. SINGULAIR [Concomitant]
     Dosage: UNK
     Route: 064
  18. ANTIPYRINE W/BENZOCAINE [Concomitant]
     Dosage: UNK
     Route: 064
  19. AMOXICILLIN [Concomitant]
     Dosage: UNK
     Route: 064

REACTIONS (23)
  - Foetal exposure during pregnancy [Unknown]
  - Coarctation of the aorta [Recovered/Resolved]
  - Bicuspid aortic valve [Recovered/Resolved]
  - Ventricular septal defect [Recovered/Resolved]
  - Pneumonia [Recovering/Resolving]
  - Patent ductus arteriosus [Unknown]
  - Aorta hypoplasia [Unknown]
  - Dacryostenosis congenital [Unknown]
  - Congenital anomaly [Unknown]
  - Pneumothorax [Unknown]
  - Respiratory distress [Recovering/Resolving]
  - Hepatomegaly [Recovered/Resolved]
  - Tachycardia [Unknown]
  - Jaundice neonatal [Unknown]
  - Atelectasis [Unknown]
  - Foetal heart rate deceleration [Unknown]
  - Upper respiratory tract infection [Unknown]
  - Candida infection [Recovered/Resolved]
  - Conjunctivitis [Unknown]
  - Viral tonsillitis [Unknown]
  - Craniocerebral injury [Unknown]
  - Attention deficit/hyperactivity disorder [Unknown]
  - Affective disorder [Unknown]
